FAERS Safety Report 8957069 (Version 1)
Quarter: 2012Q4

REPORT INFORMATION
  Report Type: 
  Country: US (occurrence: US)
  Receive Date: 20121211
  Receipt Date: 20121211
  Transmission Date: 20130627
  Serious: Yes (Other)
  Sender: FDA-Public Use
  Company Number: US-PFIZER INC-2012306489

PATIENT
  Age: 77 Year
  Sex: Female
  Weight: 55.78 kg

DRUGS (3)
  1. TOVIAZ [Suspect]
     Indication: FREQUENCY URINARY
     Dosage: 4 mg, daily
     Dates: start: 201210, end: 201211
  2. CLOPIDOGREL BISULFATE [Concomitant]
     Indication: ANTICOAGULANT THERAPY
     Dosage: 75 mg, daily
     Dates: start: 1999
  3. IBANDRONATE SODIUM [Concomitant]
     Indication: OSTEOPOROSIS
     Dosage: 150 mg, monthly

REACTIONS (3)
  - Kidney infection [Recovered/Resolved]
  - Constipation [Recovered/Resolved]
  - Back pain [Recovered/Resolved]
